FAERS Safety Report 25016347 (Version 1)
Quarter: 2025Q1

REPORT INFORMATION
  Report Type: Spontaneous
  Country: US (occurrence: US)
  Receive Date: 20250227
  Receipt Date: 20250227
  Transmission Date: 20250408
  Serious: Yes (Other)
  Sender: AMGEN
  Company Number: US-AMGEN-USASP2025036057

PATIENT
  Sex: Female

DRUGS (31)
  1. PROLIA [Suspect]
     Active Substance: DENOSUMAB
     Indication: Product used for unknown indication
     Route: 065
  2. Alpha lipoic [Concomitant]
     Route: 065
  3. ATORVASTATIN [Concomitant]
     Active Substance: ATORVASTATIN
     Route: 065
  4. DIETARY SUPPLEMENT [Concomitant]
     Active Substance: DIETARY SUPPLEMENT
     Route: 065
  5. CLOBETASOL [Concomitant]
     Active Substance: CLOBETASOL
     Route: 065
  6. DIMETHICONE [Concomitant]
     Active Substance: DIMETHICONE
     Route: 065
  7. GABAPENTIN [Concomitant]
     Active Substance: GABAPENTIN
     Route: 065
  8. HYDROCHLOROTHIAZIDE [Concomitant]
     Active Substance: HYDROCHLOROTHIAZIDE
  9. HYDROCODONE BITARTRATE AND ACETAMINOPHEN [Concomitant]
     Active Substance: ACETAMINOPHEN\HYDROCODONE BITARTRATE
  10. INTRAROSA [Concomitant]
     Active Substance: PRASTERONE
     Route: 065
  11. JARDIANCE [Concomitant]
     Active Substance: EMPAGLIFLOZIN
     Route: 065
  12. LETROZOLE [Concomitant]
     Active Substance: LETROZOLE
     Route: 065
  13. LIDOCAINE AND PRILOCAINE [Concomitant]
     Active Substance: LIDOCAINE\PRILOCAINE
     Route: 065
  14. LOSARTAN [Concomitant]
     Active Substance: LOSARTAN
     Route: 065
  15. LOVAZA [Concomitant]
     Active Substance: OMEGA-3-ACID ETHYL ESTERS
     Route: 065
  16. METFORMIN [Concomitant]
     Active Substance: METFORMIN HYDROCHLORIDE
     Route: 065
  17. VITAMINS [Concomitant]
     Active Substance: VITAMINS
     Route: 065
  18. NAPROXEN [Concomitant]
     Active Substance: NAPROXEN
  19. NYSTATIN [Concomitant]
     Active Substance: NYSTATIN
     Route: 065
  20. OMEPRAZOLE [Concomitant]
     Active Substance: OMEPRAZOLE
     Route: 065
  21. CHONDROITIN SULFATE A\GLUCOSAMINE [Concomitant]
     Active Substance: CHONDROITIN SULFATE A\GLUCOSAMINE
  22. OXYBUTYNIN [Concomitant]
     Active Substance: OXYBUTYNIN
  23. PERCOCET [Concomitant]
     Active Substance: ACETAMINOPHEN\OXYCODONE HYDROCHLORIDE
  24. DIETARY SUPPLEMENT\HERBALS [Concomitant]
     Active Substance: DIETARY SUPPLEMENT\HERBALS
     Route: 065
  25. RYBELSUS [Concomitant]
     Active Substance: SEMAGLUTIDE
     Route: 065
  26. MAGNESIUM CHLORIDE [Concomitant]
     Active Substance: MAGNESIUM CHLORIDE
     Route: 065
  27. SUDAFED [Concomitant]
     Active Substance: PSEUDOEPHEDRINE HYDROCHLORIDE
  28. Triamcinolon [Concomitant]
  29. VENLAFAXINE [Concomitant]
     Active Substance: VENLAFAXINE HYDROCHLORIDE
     Route: 065
  30. VITAMIN C [Concomitant]
     Active Substance: ASCORBIC ACID
     Route: 065
  31. IBRANCE [Concomitant]
     Active Substance: PALBOCICLIB
     Dosage: 75 MILLIGRAM, QD
     Route: 048
     Dates: start: 20230218

REACTIONS (12)
  - Neutropenia [Unknown]
  - Osteonecrosis of jaw [Unknown]
  - Uterine haemorrhage [Unknown]
  - Arthralgia [Unknown]
  - Tongue ulceration [Unknown]
  - Macrocytosis [Unknown]
  - Hot flush [Unknown]
  - Night sweats [Unknown]
  - Anxiety [Unknown]
  - Insomnia [Unknown]
  - Iron deficiency anaemia [Unknown]
  - Polyp [Unknown]
